FAERS Safety Report 9195284 (Version 1)
Quarter: 2013Q1

REPORT INFORMATION
  Report Type: Spontaneous
  Country: US (occurrence: US)
  Receive Date: 20130328
  Receipt Date: 20130328
  Transmission Date: 20140127
  Serious: No
  Sender: FDA-Public Use
  Company Number: US-ALLERGAN-1212326US

PATIENT
  Sex: Female

DRUGS (4)
  1. LATISSE 0.03% [Suspect]
     Indication: GROWTH OF EYELASHES
     Dosage: 2 GTT, QHS
     Route: 061
     Dates: end: 201208
  2. DULERA [Concomitant]
     Indication: ASTHMA
  3. PROAIR [Concomitant]
     Indication: ASTHMA
  4. BIRTH CONTROL [Concomitant]
     Indication: PRODUCT USED FOR UNKNOWN INDICATION

REACTIONS (6)
  - Eyelid sensory disorder [Recovering/Resolving]
  - Eyelid disorder [Recovering/Resolving]
  - Eyelid exfoliation [Recovering/Resolving]
  - Eyelids pruritus [Recovered/Resolved]
  - Blepharitis [Recovering/Resolving]
  - Eyelid oedema [Recovering/Resolving]
